FAERS Safety Report 8001422-2 (Version None)
Quarter: 2011Q4

REPORT INFORMATION
  Report Type: 
  Country: None (occurrence: None)
  Receive Date: 20111222
  Receipt Date: 20111216
  Transmission Date: 20120403
  Serious: Yes (Other)
  Sender: FDA-Public Use
  Company Number: US-JNJFOC-20111207773

PATIENT
  Sex: Female
  Weight: 47.17 kg

DRUGS (3)
  1. FOSAMAX [Concomitant]
     Indication: BONE LOSS
     Route: 048
     Dates: start: 20101101
  2. MEGACE [Concomitant]
     Indication: WEIGHT INCREASED
     Route: 048
     Dates: start: 20100301
  3. DOXORUBICIN HCL [Suspect]
     Indication: OVARIAN CANCER
     Route: 042
     Dates: start: 20110225, end: 20110617

REACTIONS (2)
  - OVARIAN CANCER [None]
  - CHOLELITHIASIS [None]
